FAERS Safety Report 11538494 (Version 1)
Quarter: 2015Q3

REPORT INFORMATION
  Report Type: Spontaneous
  Country: FR (occurrence: FR)
  Receive Date: 20150922
  Receipt Date: 20150922
  Transmission Date: 20151125
  Serious: Yes (Hospitalization)
  Sender: FDA-Public Use
  Company Number: FR-SA-2015SA140380

PATIENT
  Age: 75 Year
  Sex: Female

DRUGS (8)
  1. PROCORALAN [Suspect]
     Active Substance: IVABRADINE
     Indication: CARDIOMYOPATHY
     Route: 048
     Dates: start: 20150808, end: 20150822
  2. COVERSYL [Suspect]
     Active Substance: PERINDOPRIL
     Indication: CARDIOMYOPATHY
     Route: 048
     Dates: start: 20150808, end: 20150822
  3. KARDEGIC [Concomitant]
     Active Substance: ASPIRIN LYSINE
     Dates: start: 20150808
  4. INSPRA [Suspect]
     Active Substance: EPLERENONE
     Indication: CARDIOMYOPATHY
     Route: 048
     Dates: start: 20150808
  5. TAHOR [Suspect]
     Active Substance: ATORVASTATIN CALCIUM
     Route: 065
     Dates: start: 20150808, end: 20150822
  6. INEXIUM [Suspect]
     Active Substance: ESOMEPRAZOLE
     Indication: CARDIOMYOPATHY
     Route: 065
     Dates: start: 20150808, end: 20150822
  7. LASILIX [Suspect]
     Active Substance: FUROSEMIDE
     Indication: CARDIOMYOPATHY
     Route: 048
     Dates: start: 20150808
  8. ALPRAZOLAM. [Concomitant]
     Active Substance: ALPRAZOLAM

REACTIONS (2)
  - Cardiogenic shock [Not Recovered/Not Resolved]
  - Acute kidney injury [Not Recovered/Not Resolved]

NARRATIVE: CASE EVENT DATE: 20150822
